FAERS Safety Report 5928782-8 (Version None)
Quarter: 2008Q4

REPORT INFORMATION
  Report Type: 
  Country: None (occurrence: None)
  Receive Date: 20081021
  Receipt Date: 20081014
  Transmission Date: 20090506
  Serious: Yes (Death)
  Sender: FDA-Public Use
  Company Number: 000515

PATIENT
  Age: 46 Year
  Sex: Male

DRUGS (7)
  1. BUSULFEX [Suspect]
     Indication: STEM CELL TRANSPLANT
     Dosage: 9.17 ML
     Dates: start: 20061017, end: 20061020
  2. CYCLOPHOSPHAMIDE [Concomitant]
  3. ETOPOSIDE [Concomitant]
  4. PHENYTOIN [Concomitant]
  5. FILGRASTIM (FILGRASTIM) [Concomitant]
  6. METHOTREXATE [Concomitant]
  7. CYCLOSPORINE [Concomitant]

REACTIONS (4)
  - BONE MARROW TRANSPLANT REJECTION [None]
  - CYTOMEGALOVIRUS INFECTION [None]
  - GASTROINTESTINAL ULCER HAEMORRHAGE [None]
  - LIVER FUNCTION TEST ABNORMAL [None]
